FAERS Safety Report 7817203-6 (Version None)
Quarter: 2011Q4

REPORT INFORMATION
  Report Type: 
  Country: None (occurrence: None)
  Receive Date: 20111013
  Receipt Date: 20110927
  Transmission Date: 20120403
  Serious: Yes (Other)
  Sender: FDA-Public Use
  Company Number: 2011MA014516

PATIENT
  Age: 27 Year
  Sex: Female

DRUGS (6)
  1. PREGABALIN [Suspect]
     Indication: CONVULSION
  2. PREGABALIN [Suspect]
     Indication: COMPLEX PARTIAL SEIZURES
  3. LEVETIRACETAM [Suspect]
     Indication: COMPLEX PARTIAL SEIZURES
     Dosage: 1500 MG;BID
  4. LEVETIRACETAM [Suspect]
     Indication: CONVULSION
     Dosage: 1500 MG;BID
  5. TOPIRAMATE [Suspect]
     Indication: COMPLEX PARTIAL SEIZURES
  6. TOPIRAMATE [Suspect]
     Indication: CONVULSION

REACTIONS (3)
  - CONVULSION [None]
  - CONDITION AGGRAVATED [None]
  - PRODUCT SUBSTITUTION ISSUE [None]
